FAERS Safety Report 19531551 (Version 1)
Quarter: 2021Q3

REPORT INFORMATION
  Report Type: Spontaneous
  Country: TR (occurrence: TR)
  Receive Date: 20210713
  Receipt Date: 20210713
  Transmission Date: 20211014
  Serious: Yes (Other)
  Sender: FDA-Public Use
  Company Number: TR-LUPIN PHARMACEUTICALS INC.-2021-11482

PATIENT
  Age: 43 Year
  Sex: Male

DRUGS (5)
  1. ZINC. [Concomitant]
     Active Substance: ZINC
     Indication: IMMUNE ENHANCEMENT THERAPY
     Dosage: 30 MILLIGRAM, QD
     Route: 065
  2. VITAMINE C [Concomitant]
     Active Substance: ASCORBIC ACID
     Indication: IMMUNE ENHANCEMENT THERAPY
     Dosage: 1000 MILLIGRAM, QD
     Route: 065
  3. HYDROXYCHLOROQUINE [Suspect]
     Active Substance: HYDROXYCHLOROQUINE
     Indication: COVID-19
     Dosage: UNK
     Route: 065
  4. VITAMIN D [Concomitant]
     Active Substance: VITAMIN D NOS
     Indication: IMMUNE ENHANCEMENT THERAPY
     Dosage: 2400 INTERNATIONAL UNIT, QD
     Route: 065
  5. CHLORPROMAZINE. [Concomitant]
     Active Substance: CHLORPROMAZINE
     Indication: MENTAL DISORDER
     Dosage: 300 MILLIGRAM, QD
     Route: 065

REACTIONS (1)
  - Off label use [Unknown]
